FAERS Safety Report 13267915 (Version 1)
Quarter: 2017Q1

REPORT INFORMATION
  Report Type: Spontaneous
  Country: None (occurrence: US)
  Receive Date: 20170224
  Receipt Date: 20170224
  Transmission Date: 20170428
  Serious: Yes (Hospitalization)
  Sender: FDA-Public Use
  Company Number: None

PATIENT
  Age: 70 Year
  Sex: Female
  Weight: 74 kg

DRUGS (2)
  1. ETOPOSIDE (VP-16) [Suspect]
     Active Substance: ETOPOSIDE
     Dates: end: 20170119
  2. CARBOPLATIN. [Suspect]
     Active Substance: CARBOPLATIN
     Dates: end: 20170117

REACTIONS (6)
  - Neutrophil count abnormal [None]
  - Radiation oesophagitis [None]
  - Platelet count abnormal [None]
  - Dehydration [None]
  - Dysphagia [None]
  - White blood cell count abnormal [None]

NARRATIVE: CASE EVENT DATE: 20170131
